FAERS Safety Report 6898190-4 (Version None)
Quarter: 2010Q3

REPORT INFORMATION
  Report Type: 
  Country: None (occurrence: None)
  Receive Date: 20100802
  Receipt Date: 20070917
  Transmission Date: 20110219
  Serious: No
  Sender: FDA-Public Use
  Company Number: US-PFIZER INC-2007078001

PATIENT
  Sex: Male
  Weight: 81.818 kg

DRUGS (13)
  1. LYRICA [Suspect]
     Indication: SPINAL COLUMN STENOSIS
     Dates: start: 20070801
  2. LYRICA [Suspect]
     Indication: BACK PAIN
  3. CORTICOSTEROIDS [Suspect]
     Indication: SPINAL COLUMN STENOSIS
     Dates: start: 20070801
  4. CORTICOSTEROIDS [Suspect]
     Indication: BACK PAIN
  5. LOPRESSOR [Concomitant]
  6. HYTRIN [Concomitant]
  7. ACETYLSALICYLIC ACID SRT [Concomitant]
  8. MOTRIN [Concomitant]
  9. MULTI-VITAMINS [Concomitant]
  10. HYDROCHLOROTHIAZIDE [Concomitant]
  11. LIPITOR [Concomitant]
  12. AVANDIA [Concomitant]
     Indication: DIABETES MELLITUS
  13. DRUG USED IN DIABETES [Concomitant]
     Indication: DIABETES MELLITUS

REACTIONS (2)
  - BLOOD GLUCOSE INCREASED [None]
  - FEELING ABNORMAL [None]
